FAERS Safety Report 6884649-2 (Version None)
Quarter: 2010Q3

REPORT INFORMATION
  Report Type: 
  Country: None (occurrence: None)
  Receive Date: 20100729
  Receipt Date: 20070712
  Transmission Date: 20110219
  Serious: Yes (Hospitalization)
  Sender: FDA-Public Use
  Company Number: US-PFIZER INC-2007058356

PATIENT
  Sex: Female
  Weight: 98.4 kg

DRUGS (7)
  1. CELEBREX [Suspect]
     Indication: ARTHRITIS
     Dates: start: 19990101
  2. VIOXX [Concomitant]
  3. ADVIL LIQUI-GELS [Concomitant]
  4. MORPHINE [Concomitant]
  5. OXYCONTIN [Concomitant]
  6. ACETAMINOPHEN [Concomitant]
  7. ULTRAM [Concomitant]

REACTIONS (1)
  - DEEP VEIN THROMBOSIS [None]
